FAERS Safety Report 7525079-X (Version None)
Quarter: 2011Q2

REPORT INFORMATION
  Report Type: 
  Country: None (occurrence: None)
  Receive Date: 20110526
  Receipt Date: 20110516
  Transmission Date: 20111010
  Serious: Yes (Death, Other)
  Sender: FDA-Public Use
  Company Number: 2011P1006503

PATIENT
  Age: 76 Year
  Sex: Male
  Weight: 95 kg

DRUGS (15)
  1. AMLODIPINE [Concomitant]
  2. PREDNISONE [Concomitant]
  3. MOMETASONE INHALER [Concomitant]
  4. MILK OF MAGNESIA TAB [Concomitant]
  5. MORPHINE [Concomitant]
  6. PRAVASTATIN [Concomitant]
  7. ASPIRIN [Concomitant]
  8. WARFARIN SODIUM [Suspect]
     Indication: ANGIOPATHY
     Dosage: QD, PO
     Route: 048
     Dates: start: 20110502, end: 20110504
  9. METOPROLOL [Concomitant]
  10. VALIUM [Concomitant]
  11. COLACE [Concomitant]
  12. WARFARIN SODIUM [Suspect]
     Indication: ANGIOPATHY
     Dosage: QD, PO
     Route: 048
     Dates: start: 20110430, end: 20110501
  13. LASIX [Concomitant]
  14. WARFARIN SODIUM [Suspect]
     Indication: ANGIOPATHY
     Dosage: QD, PO
     Route: 048
     Dates: start: 20110422, end: 20110424
  15. LOVENOX [Concomitant]

REACTIONS (5)
  - HAEMOGLOBIN DECREASED [None]
  - INTERNATIONAL NORMALISED RATIO INCREASED [None]
  - HAEMATOCRIT DECREASED [None]
  - INTERNATIONAL NORMALISED RATIO DECREASED [None]
  - PLATELET COUNT DECREASED [None]
